FAERS Safety Report 11390405 (Version 1)
Quarter: 2015Q3

REPORT INFORMATION
  Report Type: Spontaneous
  Country: US (occurrence: US)
  Receive Date: 20150818
  Receipt Date: 20150818
  Transmission Date: 20151125
  Serious: No
  Sender: FDA-Public Use
  Company Number: US-ROCHE-1395723

PATIENT
  Sex: Male
  Weight: 94.43 kg

DRUGS (8)
  1. MORPHINE [Concomitant]
     Active Substance: MORPHINE
  2. RIBASPHERE RIBAPAK [Concomitant]
     Active Substance: RIBAVIRIN
  3. PEGASYS [Suspect]
     Active Substance: PEGINTERFERON ALFA-2A
     Indication: HEPATITIS C
     Route: 058
     Dates: start: 20140228
  4. FLUTICASONE [Concomitant]
     Active Substance: FLUTICASONE\FLUTICASONE PROPIONATE
  5. METHADONE [Concomitant]
     Active Substance: METHADONE HYDROCHLORIDE
  6. ALBUTEROL. [Concomitant]
     Active Substance: ALBUTEROL
  7. NEXIUM [Concomitant]
     Active Substance: ESOMEPRAZOLE MAGNESIUM
  8. SOVALDI [Concomitant]
     Active Substance: SOFOSBUVIR

REACTIONS (3)
  - Nausea [Not Recovered/Not Resolved]
  - Poor quality sleep [Not Recovered/Not Resolved]
  - Fatigue [Not Recovered/Not Resolved]
